FAERS Safety Report 8520889-4 (Version None)
Quarter: 2012Q3

REPORT INFORMATION
  Report Type: 
  Country: None (occurrence: None)
  Receive Date: 20120706
  Receipt Date: 20120626
  Transmission Date: 20120928
  Serious: Yes (Hospitalization)
  Sender: FDA-Public Use
  Company Number: DKLU1082766

PATIENT
  Age: 21 Year
  Sex: Female

DRUGS (5)
  1. LEVOTHYROXINE SODIUM [Concomitant]
  2. IXTORIVIL (CLONAZEPAM) [Concomitant]
  3. ABSENOR (VALPROIC ACID) [Concomitant]
  4. VALPROATE SODIUM [Suspect]
     Indication: EPILEPSY
     Dosage: 1200 MG MILLIGRAM(S), 1 IN 1 D, ORAL : 2 IN 1 D, ORAL
     Route: 048
     Dates: start: 20100701
  5. ONFI [Suspect]
     Indication: PRODUCT USED FOR UNKNOWN INDICATION

REACTIONS (5)
  - WEIGHT INCREASED [None]
  - HAIR COLOUR CHANGES [None]
  - AMENORRHOEA [None]
  - ALOPECIA [None]
  - ABDOMINAL PAIN UPPER [None]
